FAERS Safety Report 10260960 (Version 2)
Quarter: 2014Q3

REPORT INFORMATION
  Report Type: Spontaneous
  Country: US (occurrence: US)
  Receive Date: 20140626
  Receipt Date: 20140718
  Transmission Date: 20150326
  Serious: No
  Sender: FDA-Public Use
  Company Number: US-PFIZER INC-2014174095

PATIENT
  Age: 58 Year
  Sex: Female
  Weight: 68 kg

DRUGS (3)
  1. LEVOXYL [Suspect]
     Active Substance: LEVOTHYROXINE SODIUM
     Indication: THYROIDITIS SUBACUTE
     Dosage: 75 UG, UNK
     Dates: start: 201403, end: 2014
  2. CABERGOLINE. [Concomitant]
     Active Substance: CABERGOLINE
     Dosage: 0.5 MG, 2X/WEEK (0.5 MG. 1/2 TAB TWICE X WEEK)
  3. ETHINYL ESTRADIOL [Concomitant]
     Active Substance: ETHINYL ESTRADIOL
     Dosage: 0.05 MG, DAILY

REACTIONS (6)
  - Pruritus [Unknown]
  - Reaction to drug excipients [Unknown]
  - Dyspepsia [Unknown]
  - Drug effect incomplete [Unknown]
  - Malaise [Unknown]
  - Feeling abnormal [Unknown]

NARRATIVE: CASE EVENT DATE: 2014
